FAERS Safety Report 18936103 (Version 3)
Quarter: 2021Q2

REPORT INFORMATION
  Report Type: Report from Study
  Country: US (occurrence: US)
  Receive Date: 20210224
  Receipt Date: 20210621
  Transmission Date: 20210717
  Serious: No
  Sender: FDA-Public Use
  Company Number: US-TAKEDA-2021TUS011850

PATIENT
  Age: 59 Year
  Sex: Female
  Weight: 59 kg

DRUGS (16)
  1. TEDUGLUTIDE [Suspect]
     Active Substance: TEDUGLUTIDE
     Indication: SHORT-BOWEL SYNDROME
     Dosage: 5 MILLIGRAM, QD
     Route: 058
     Dates: start: 20200811
  2. TEDUGLUTIDE [Suspect]
     Active Substance: TEDUGLUTIDE
     Dosage: 0.15 MILLILITER,QD
     Route: 058
     Dates: start: 20210311
  3. TEDUGLUTIDE [Suspect]
     Active Substance: TEDUGLUTIDE
     Dosage: 2.52 MILLIGRAM,QD
     Route: 058
     Dates: start: 20200814
  4. TEDUGLUTIDE [Suspect]
     Active Substance: TEDUGLUTIDE
     Dosage: 0.929 MILLILITER,QD
     Route: 065
     Dates: end: 20210311
  5. TEDUGLUTIDE [Suspect]
     Active Substance: TEDUGLUTIDE
     Dosage: 0.929 MILLILITER,QD
     Route: 065
     Dates: end: 20210311
  6. TEDUGLUTIDE [Suspect]
     Active Substance: TEDUGLUTIDE
     Dosage: 2.52 MILLIGRAM,QD
     Route: 058
     Dates: start: 20200814
  7. TEDUGLUTIDE [Suspect]
     Active Substance: TEDUGLUTIDE
     Dosage: 0.929 MILLILITER,QD
     Route: 065
     Dates: end: 20210311
  8. TEDUGLUTIDE [Suspect]
     Active Substance: TEDUGLUTIDE
     Indication: SHORT-BOWEL SYNDROME
     Dosage: 5 MILLIGRAM, QD
     Route: 058
     Dates: start: 20200811
  9. TEDUGLUTIDE [Suspect]
     Active Substance: TEDUGLUTIDE
     Dosage: 2.52 MILLIGRAM,QD
     Route: 058
     Dates: start: 20200814
  10. TEDUGLUTIDE [Suspect]
     Active Substance: TEDUGLUTIDE
     Indication: SHORT-BOWEL SYNDROME
     Dosage: 5 MILLIGRAM, QD
     Route: 058
     Dates: start: 20200811
  11. TEDUGLUTIDE [Suspect]
     Active Substance: TEDUGLUTIDE
     Dosage: 2.52 MILLIGRAM,QD
     Route: 058
     Dates: start: 20200814
  12. TEDUGLUTIDE [Suspect]
     Active Substance: TEDUGLUTIDE
     Dosage: 0.929 MILLILITER,QD
     Route: 065
     Dates: end: 20210311
  13. TEDUGLUTIDE [Suspect]
     Active Substance: TEDUGLUTIDE
     Dosage: 0.15 MILLILITER,QD
     Route: 058
     Dates: start: 20210311
  14. TEDUGLUTIDE [Suspect]
     Active Substance: TEDUGLUTIDE
     Dosage: 0.15 MILLILITER,QD
     Route: 058
     Dates: start: 20210311
  15. TEDUGLUTIDE [Suspect]
     Active Substance: TEDUGLUTIDE
     Indication: SHORT-BOWEL SYNDROME
     Dosage: 5 MILLIGRAM, QD
     Route: 058
     Dates: start: 20200811
  16. TEDUGLUTIDE [Suspect]
     Active Substance: TEDUGLUTIDE
     Dosage: 0.15 MILLILITER,QD
     Route: 058
     Dates: start: 20210311

REACTIONS (5)
  - Weight increased [Unknown]
  - Diarrhoea [Unknown]
  - Abdominal distension [Unknown]
  - Renal disorder [Unknown]
  - Intentional product use issue [Unknown]

NARRATIVE: CASE EVENT DATE: 20210311
